FAERS Safety Report 14770494 (Version 1)
Quarter: 2018Q2

REPORT INFORMATION
  Report Type: Spontaneous
  Country: IT (occurrence: IT)
  Receive Date: 20180417
  Receipt Date: 20180417
  Transmission Date: 20180711
  Serious: Yes (Other)
  Sender: FDA-Public Use
  Company Number: IT-PFIZER INC-2018155169

PATIENT
  Age: 16 Year
  Sex: Female

DRUGS (1)
  1. ZITROMAX [Suspect]
     Active Substance: AZITHROMYCIN
     Indication: TONSILLITIS
     Dosage: 1 DF, SINGLE (TOTAL)
     Route: 048
     Dates: start: 20171201, end: 20171201

REACTIONS (2)
  - Rash [Recovering/Resolving]
  - Eyelid oedema [Recovering/Resolving]

NARRATIVE: CASE EVENT DATE: 20171201
